FAERS Safety Report 26019642 (Version 1)
Quarter: 2025Q4

REPORT INFORMATION
  Report Type: Report from Study
  Country: US (occurrence: US)
  Receive Date: 20251110
  Receipt Date: 20251110
  Transmission Date: 20260117
  Serious: Yes (Other)
  Sender: BAYER HEALTHCARE PHARMACEUTICALS INC.
  Company Number: US-BAYER-2025A145952

PATIENT
  Age: 52 Year
  Sex: Female
  Weight: 61.678 kg

DRUGS (44)
  1. ADEMPAS [Suspect]
     Active Substance: RIOCIGUAT
     Indication: Pulmonary arterial hypertension
     Dosage: 0.5 MG, TID
     Route: 048
     Dates: start: 20251016
  2. ADEMPAS [Suspect]
     Active Substance: RIOCIGUAT
     Indication: Pulmonary arterial hypertension
     Dosage: 1 MG, TID
     Route: 048
     Dates: end: 202511
  3. DULOXETINE HYDROCHLORIDE [Concomitant]
     Active Substance: DULOXETINE HYDROCHLORIDE
  4. MILK OF MAGNESIA [Concomitant]
     Active Substance: MAGNESIUM HYDROXIDE
  5. TOPIRAMATE [Concomitant]
     Active Substance: TOPIRAMATE
  6. SODIUM CHLORIDE [Concomitant]
     Active Substance: SODIUM CHLORIDE
  7. ELIQUIS [Concomitant]
     Active Substance: APIXABAN
  8. LACTULOSE [Concomitant]
     Active Substance: LACTULOSE
  9. METHENAMINE HIPPURATE [Concomitant]
     Active Substance: METHENAMINE HIPPURATE
  10. ALLEGRA ALLERGY [Concomitant]
     Active Substance: FEXOFENADINE HYDROCHLORIDE
  11. METHOCARBAMOL [Concomitant]
     Active Substance: METHOCARBAMOL
  12. POTASSIUM CHLORIDE [Concomitant]
     Active Substance: POTASSIUM CHLORIDE
  13. TAMSULOSIN HYDROCHLORIDE [Concomitant]
     Active Substance: TAMSULOSIN HYDROCHLORIDE
  14. AZELASTINE HYDROCHLORIDE [Concomitant]
     Active Substance: AZELASTINE HYDROCHLORIDE
  15. BREO ELLIPTA [Concomitant]
     Active Substance: FLUTICASONE FUROATE\VILANTEROL TRIFENATATE
  16. GENTAMICIN SULFATE [Concomitant]
     Active Substance: GENTAMICIN SULFATE
  17. SYNTHROID [Concomitant]
     Active Substance: LEVOTHYROXINE SODIUM
  18. LEVALBUTEROL HYDROCHLORIDE [Concomitant]
     Active Substance: LEVALBUTEROL HYDROCHLORIDE
  19. GABAPENTIN [Concomitant]
     Active Substance: GABAPENTIN
  20. SUCRALFATE [Concomitant]
     Active Substance: SUCRALFATE
  21. DICYCLOMINE HYDROCHLORIDE [Concomitant]
     Active Substance: DICYCLOMINE HYDROCHLORIDE
  22. SOLIFENACIN SUCCINATE [Concomitant]
     Active Substance: SOLIFENACIN SUCCINATE
  23. Vitamin d3 + k2 [Concomitant]
  24. MECLIZINE HYDROCHLORIDE [Concomitant]
     Active Substance: MECLIZINE HYDROCHLORIDE
  25. MELATONIN [Concomitant]
     Active Substance: MELATONIN
  26. BENADRYL ALLERGY [Concomitant]
     Active Substance: DIPHENHYDRAMINE HYDROCHLORIDE
  27. COMPAZINE [Concomitant]
     Active Substance: PROCHLORPERAZINE MALEATE
  28. MIRTAZAPINE [Concomitant]
     Active Substance: MIRTAZAPINE
  29. IPRATROPIUM BROMIDE [Concomitant]
     Active Substance: IPRATROPIUM BROMIDE
  30. NYSTATIN [Concomitant]
     Active Substance: NYSTATIN
  31. BUDESONIDE [Concomitant]
     Active Substance: BUDESONIDE
  32. VANCOMYCIN HYDROCHLORIDE [Concomitant]
     Active Substance: VANCOMYCIN HYDROCHLORIDE
  33. ZINC [Concomitant]
     Active Substance: ZINC
  34. OXYGEN [Concomitant]
     Active Substance: OXYGEN
  35. PROBIOTICS NOS [Concomitant]
     Active Substance: PROBIOTICS NOS
  36. SPIRONOLACTONE [Concomitant]
     Active Substance: SPIRONOLACTONE
  37. VYEPTI [Concomitant]
     Active Substance: EPTINEZUMAB-JJMR
  38. ACETAMINOPHEN\BUTALBITAL\CAFFEINE [Concomitant]
     Active Substance: ACETAMINOPHEN\BUTALBITAL\CAFFEINE
  39. ONDANSETRON HYDROCHLORIDE [Concomitant]
     Active Substance: ONDANSETRON HYDROCHLORIDE
  40. TORSEMIDE [Concomitant]
     Active Substance: TORSEMIDE
  41. BOTOX [Concomitant]
     Active Substance: ONABOTULINUMTOXINA
  42. Centrum adults [Concomitant]
  43. UBRELVY [Concomitant]
     Active Substance: UBROGEPANT
  44. LEVALBUTEROL [Concomitant]
     Active Substance: LEVALBUTEROL

REACTIONS (3)
  - Gastrointestinal tube insertion [None]
  - Nausea [None]
  - Diarrhoea [None]

NARRATIVE: CASE EVENT DATE: 20251001
